FAERS Safety Report 16152246 (Version 1)
Quarter: 2019Q2

REPORT INFORMATION
  Report Type: Spontaneous
  Country: US (occurrence: US)
  Receive Date: 20190403
  Receipt Date: 20190403
  Transmission Date: 20190711
  Serious: No
  Sender: FDA-Public Use
  Company Number: US-009507513-1903USA004466

PATIENT

DRUGS (1)
  1. PROPECIA [Suspect]
     Active Substance: FINASTERIDE

REACTIONS (3)
  - Circumstance or information capable of leading to medication error [Unknown]
  - No adverse event [Unknown]
  - Product packaging quantity issue [Unknown]

NARRATIVE: CASE EVENT DATE: 20180308
